FAERS Safety Report 22050494 (Version 1)
Quarter: 2023Q1

REPORT INFORMATION
  Report Type: Spontaneous
  Country: VI (occurrence: VI)
  Receive Date: 20230301
  Receipt Date: 20230301
  Transmission Date: 20230418
  Serious: Yes (Other)
  Sender: FDA-Public Use
  Company Number: VI-PFIZER INC-202300083866

PATIENT
  Age: 57 Year

DRUGS (2)
  1. ZYVOX [Suspect]
     Active Substance: LINEZOLID
     Dosage: UNK
     Route: 042
  2. LINEZOLID [Suspect]
     Active Substance: LINEZOLID
     Dosage: UNK

REACTIONS (9)
  - Near death experience [Unknown]
  - Visual impairment [Unknown]
  - Eye disorder [Unknown]
  - Muscle disorder [Unknown]
  - Headache [Unknown]
  - Thinking abnormal [Unknown]
  - Cognitive disorder [Unknown]
  - Muscle tone disorder [Unknown]
  - Mobility decreased [Unknown]
